FAERS Safety Report 7595644-2 (Version None)
Quarter: 2011Q3

REPORT INFORMATION
  Report Type: 
  Country: None (occurrence: None)
  Receive Date: 20110707
  Receipt Date: 20110628
  Transmission Date: 20111222
  Serious: Yes (Other)
  Sender: FDA-Public Use
  Company Number: PHHY2011US25748

PATIENT
  Age: 17 Year
  Sex: Male

DRUGS (7)
  1. METHOTREXATE [Suspect]
     Indication: HISTIOCYTOSIS HAEMATOPHAGIC
     Route: 037
  2. CYCLOSPORINE [Suspect]
     Indication: HISTIOCYTOSIS HAEMATOPHAGIC
  3. CYTARABINE [Concomitant]
     Indication: HISTIOCYTOSIS HAEMATOPHAGIC
  4. RETINOIC ACID [Concomitant]
     Indication: HISTIOCYTOSIS HAEMATOPHAGIC
  5. DEXAMETHASONE [Suspect]
     Indication: HISTIOCYTOSIS HAEMATOPHAGIC
     Dosage: 0.2 MG/KG
  6. DAUNORUBICIN HCL [Concomitant]
     Indication: HISTIOCYTOSIS HAEMATOPHAGIC
  7. ETOPOSIDE [Suspect]
     Indication: HISTIOCYTOSIS HAEMATOPHAGIC
     Dosage: 150 MG/M2 WEEKLY DOSE

REACTIONS (7)
  - DISSEMINATED INTRAVASCULAR COAGULATION [None]
  - PYREXIA [None]
  - NEUTROPENIA [None]
  - ANAEMIA [None]
  - THROMBOCYTOPENIA [None]
  - PANCYTOPENIA [None]
  - ACUTE PROMYELOCYTIC LEUKAEMIA [None]
